FAERS Safety Report 4533016-5 (Version None)
Quarter: 2004Q4

REPORT INFORMATION
  Report Type: 
  Country: None (occurrence: None)
  Receive Date: 20041221
  Receipt Date: 20041220
  Transmission Date: 20050328
  Serious: Yes (Hospitalization)
  Sender: FDA-Public Use
  Company Number: GB-BRISTOL-MYERS SQUIBB COMPANY-12799706

PATIENT
  Age: 75 Year
  Sex: Female

DRUGS (12)
  1. DILTIAZEM HCL [Suspect]
     Indication: VENTRICULAR DYSFUNCTION
     Route: 048
     Dates: end: 20041202
  2. ISOSORBIDE [Suspect]
     Indication: MYOCARDIAL ISCHAEMIA
     Route: 048
     Dates: end: 20041202
  3. LISINOPRIL [Suspect]
     Indication: VENTRICULAR DYSFUNCTION
     Route: 048
     Dates: end: 20041202
  4. LACTULOSE [Concomitant]
  5. SIMVASTATINE [Concomitant]
     Dosage: EVERY NIGHT
  6. SERETIDE [Concomitant]
     Dosage: 2 PUFFS TWICE DAILY
     Route: 055
  7. TIOTROPIUM BROMIDE [Concomitant]
     Route: 055
  8. LANSOPRAZOLE [Concomitant]
  9. CALCICHEW [Concomitant]
  10. AMITRIPTYLINE HCL [Concomitant]
     Dosage: EVERY NIGHT
  11. ASPIRIN [Concomitant]
  12. CLOPIDOGREL BISULFATE [Concomitant]

REACTIONS (1)
  - CIRCULATORY COLLAPSE [None]
